FAERS Safety Report 5615539-0 (Version None)
Quarter: 2008Q1

REPORT INFORMATION
  Report Type: 
  Country: None (occurrence: None)
  Receive Date: 20080206
  Receipt Date: 20080130
  Transmission Date: 20080703
  Serious: Yes (Hospitalization)
  Sender: FDA-Public Use
  Company Number: AU-GENENTECH-253802

PATIENT
  Sex: Male
  Weight: 72 kg

DRUGS (10)
  1. RITUXIMAB [Suspect]
     Indication: B-CELL LYMPHOMA
     Dosage: 750 MG, QD
     Route: 042
     Dates: start: 20070822
  2. NEULASTA [Suspect]
     Indication: CHEMOTHERAPY
     Dosage: UNK, SINGLE
     Route: 058
     Dates: start: 20070825
  3. NEULASTA [Suspect]
     Dosage: UNK, SINGLE
     Route: 058
     Dates: start: 20070929
  4. NEULASTA [Suspect]
     Dosage: UNK, SINGLE
     Route: 058
     Dates: start: 20071103
  5. NEULASTA [Suspect]
     Dosage: UNK, SINGLE
     Route: 058
     Dates: start: 20071208
  6. IFOSFAMIDE [Suspect]
     Indication: B-CELL LYMPHOMA
     Dosage: 9750 MG, QD
     Route: 042
     Dates: start: 20070822
  7. ETOPOSIDE [Suspect]
     Indication: B-CELL LYMPHOMA
     Dosage: 765 MG, QD
     Route: 042
     Dates: start: 20070822
  8. CELEBREX [Concomitant]
     Indication: DRUG USE FOR UNKNOWN INDICATION
  9. ZANTAC [Concomitant]
     Indication: DRUG USE FOR UNKNOWN INDICATION
  10. MESNA [Concomitant]
     Indication: DRUG USE FOR UNKNOWN INDICATION
     Dates: start: 20071205, end: 20071207

REACTIONS (1)
  - FEBRILE NEUTROPENIA [None]
